FAERS Safety Report 15324678 (Version 2)
Quarter: 2018Q3

REPORT INFORMATION
  Report Type: Spontaneous
  Country: US (occurrence: US)
  Receive Date: 20180828
  Receipt Date: 20180830
  Transmission Date: 20181010
  Serious: No
  Sender: FDA-Public Use
  Company Number: US-PFIZER INC-2018342019

PATIENT
  Sex: Female

DRUGS (8)
  1. VITAMIN C [Concomitant]
     Active Substance: ASCORBIC ACID
  2. D?MANNOSE [Concomitant]
     Dosage: 1000 MG, 1X/DAY
  3. TOVIAZ [Suspect]
     Active Substance: FESOTERODINE FUMARATE
     Dosage: 8 MG, UNK
  4. D?MANNOSE [Concomitant]
     Dosage: UNK
  5. CIPROFLOXACIN. [Interacting]
     Active Substance: CIPROFLOXACIN
     Indication: CYSTITIS
     Dosage: UNK
  6. D?MANNOSE [Concomitant]
     Indication: URINARY TRACT INFECTION
     Dosage: 1000 MG, 2X/DAY
  7. D?MANNOSE [Concomitant]
     Dosage: 500 MG, 1X/DAY
  8. PROBIOTIC [Concomitant]
     Active Substance: PROBIOTICS NOS

REACTIONS (2)
  - Drug effect decreased [Recovered/Resolved]
  - Drug interaction [Recovered/Resolved]
